FAERS Safety Report 25707383 (Version 1)
Quarter: 2025Q3

REPORT INFORMATION
  Report Type: Spontaneous
  Country: EU (occurrence: EU)
  Receive Date: 20250820
  Receipt Date: 20250820
  Transmission Date: 20251021
  Serious: Yes (Life-Threatening, Hospitalization, Other)
  Sender: PFIZER
  Company Number: EU-PFIZER INC-202500166223

PATIENT
  Age: 83 Year
  Sex: Female

DRUGS (8)
  1. METHYLPREDNISOLONE SODIUM SUCCINATE [Suspect]
     Active Substance: METHYLPREDNISOLONE SODIUM SUCCINATE
     Indication: Colitis
     Route: 042
  2. INFLIXIMAB [Suspect]
     Active Substance: INFLIXIMAB
     Indication: Colitis
     Route: 042
     Dates: start: 20220318
  3. INFLIXIMAB [Suspect]
     Active Substance: INFLIXIMAB
     Route: 042
     Dates: start: 20220329
  4. PREDNISOLONE [Suspect]
     Active Substance: PREDNISOLONE
     Indication: Colitis
     Route: 048
  5. PREDNISOLONE [Suspect]
     Active Substance: PREDNISOLONE
  6. LOPERAMIDE [Suspect]
     Active Substance: LOPERAMIDE
     Indication: Colitis
  7. MYCOPHENOLATE MOFETIL [Suspect]
     Active Substance: MYCOPHENOLATE MOFETIL
     Indication: Colitis
     Dosage: 3 G, DAILY (ADDED TO ESCALATE TREATMENT AFTER 5 DAYS OF INPATIENT TREATMENT)
  8. MYCOPHENOLATE MOFETIL [Suspect]
     Active Substance: MYCOPHENOLATE MOFETIL
     Dosage: 3 G, DAILY (ADDED TO ESCALATE TREATMENT AFTER 5 DAYS OF INPATIENT TREATMENT)
     Dates: start: 20220329

REACTIONS (1)
  - Treatment failure [Unknown]
